FAERS Safety Report 16417215 (Version 3)
Quarter: 2019Q3

REPORT INFORMATION
  Report Type: Spontaneous
  Country: JP (occurrence: JP)
  Receive Date: 20190611
  Receipt Date: 20190820
  Transmission Date: 20191004
  Serious: Yes (Life-Threatening, Hospitalization, Other)
  Sender: FDA-Public Use
  Company Number: JP-NAPPMUNDI-GBR-2019-0067154

PATIENT
  Age: 80 Year
  Sex: Female
  Weight: 29 kg

DRUGS (10)
  1. THEOPHYLLINE [Suspect]
     Active Substance: THEOPHYLLINE ANHYDROUS
     Indication: CHRONIC OBSTRUCTIVE PULMONARY DISEASE
     Dosage: 200 MG, DAILY (STRENGHT 200 MG)
     Route: 048
     Dates: start: 20181213, end: 20190107
  2. FEBUXOSTAT. [Concomitant]
     Active Substance: FEBUXOSTAT
     Dosage: 10 MG, DAILY
     Route: 048
  3. ASPIRIN. [Concomitant]
     Active Substance: ASPIRIN
     Indication: CAROTID ARTERY ANEURYSM
     Dosage: 100 MG, DAILY
     Route: 048
  4. RIVAROXABAN [Concomitant]
     Active Substance: RIVAROXABAN
     Indication: ATRIAL FIBRILLATION
     Dosage: 10 MG, DAILY
     Route: 048
  5. LANSOPRAZOLE. [Concomitant]
     Active Substance: LANSOPRAZOLE
     Indication: CARDIAC FAILURE
     Dosage: 15 MG, DAILY
     Route: 048
  6. FUROSEMIDE. [Concomitant]
     Active Substance: FUROSEMIDE
     Indication: CARDIAC FAILURE
     Dosage: 20 MG, DAILY
     Route: 048
  7. LEVOTHYROXINE. [Concomitant]
     Active Substance: LEVOTHYROXINE
     Dosage: 0.5 MCG, DAILY
     Route: 048
  8. AMLODIPINE [Concomitant]
     Active Substance: AMLODIPINE BESYLATE
     Indication: CARDIAC FAILURE
     Dosage: 5 MG, DAILY
     Route: 048
  9. FUDOSTEINE [Concomitant]
     Active Substance: FUDOSTEINE
     Dosage: 200 MG, TID
     Route: 048
  10. INDACATEROL [Concomitant]
     Active Substance: INDACATEROL
     Indication: CHRONIC OBSTRUCTIVE PULMONARY DISEASE
     Dosage: 1 DF, DAILY
     Route: 055

REACTIONS (6)
  - Tachycardia [Recovering/Resolving]
  - Loss of consciousness [Recovering/Resolving]
  - Hypotension [Recovering/Resolving]
  - Toxicity to various agents [Recovering/Resolving]
  - Sepsis [Recovering/Resolving]
  - Hyperglycaemia [Recovering/Resolving]

NARRATIVE: CASE EVENT DATE: 20190108
